FAERS Safety Report 20534404 (Version 3)
Quarter: 2022Q2

REPORT INFORMATION
  Report Type: Other
  Country: US (occurrence: None)
  Receive Date: 20220302
  Receipt Date: 20220415
  Transmission Date: 20220720
  Serious: Yes (Other)
  Sender: FDA-Public Use
  Company Number: US-ROCHE-3028697

PATIENT
  Sex: Female

DRUGS (11)
  1. OCREVUS [Suspect]
     Active Substance: OCRELIZUMAB
     Indication: Cranial nerve disorder
     Route: 042
  2. VITAMIN C [Concomitant]
     Active Substance: ASCORBIC ACID
  3. FLUCONAZOLE [Concomitant]
     Active Substance: FLUCONAZOLE
  4. FLUOXETINE [Concomitant]
     Active Substance: FLUOXETINE HYDROCHLORIDE
  5. ONDANSETRON [Concomitant]
     Active Substance: ONDANSETRON
  6. OXCARBAZEPINE [Concomitant]
     Active Substance: OXCARBAZEPINE
  7. VALACYCLOVIR [Concomitant]
     Active Substance: VALACYCLOVIR HYDROCHLORIDE
  8. ROPINIROLE [Concomitant]
     Active Substance: ROPINIROLE
  9. IBUPROFEN [Concomitant]
     Active Substance: IBUPROFEN
  10. CLONAZEPAM [Concomitant]
     Active Substance: CLONAZEPAM
     Indication: Product use in unapproved indication
     Route: 048
  11. VITAMIN D3 [Concomitant]
     Active Substance: CHOLECALCIFEROL

REACTIONS (28)
  - Fatigue [Unknown]
  - Limb discomfort [Unknown]
  - Aspartate aminotransferase increased [Unknown]
  - Alanine aminotransferase increased [Unknown]
  - Fibrin D dimer increased [Unknown]
  - Headache [Unknown]
  - Weight increased [Unknown]
  - Muscular weakness [Unknown]
  - Varicose vein [Unknown]
  - Vertigo [Unknown]
  - Hypoaesthesia [Unknown]
  - Coordination abnormal [Unknown]
  - Memory impairment [Unknown]
  - Gait disturbance [Unknown]
  - Nail disorder [Unknown]
  - Abdominal pain [Unknown]
  - Constipation [Unknown]
  - Diarrhoea [Unknown]
  - Pain in extremity [Unknown]
  - Arthralgia [Unknown]
  - Back pain [Unknown]
  - Temperature intolerance [Unknown]
  - Anxiety [Unknown]
  - COVID-19 [Unknown]
  - Gingival disorder [Unknown]
  - Dysphagia [Unknown]
  - Pruritus [Unknown]
  - Multiple sclerosis relapse [Unknown]
